FAERS Safety Report 7505427-7 (Version None)
Quarter: 2011Q2

REPORT INFORMATION
  Report Type: 
  Country: None (occurrence: None)
  Receive Date: 20110526
  Receipt Date: 20110512
  Transmission Date: 20111010
  Serious: Yes (Other)
  Sender: FDA-Public Use
  Company Number: PHNU2001DE00961

PATIENT
  Age: 72 Year
  Sex: Female

DRUGS (12)
  1. CITALOPRAM HYDROBROMIDE [Suspect]
     Dosage: 40 MG PER DAY
     Route: 048
     Dates: start: 20001110, end: 20001212
  2. CITALOPRAM HYDROBROMIDE [Suspect]
     Dosage: 20 MG, PER DAY
     Route: 048
     Dates: start: 20001213, end: 20001216
  3. MUCOFALK [Concomitant]
     Dosage: 40 MG, PER DAY
     Route: 048
  4. ADALAT [Concomitant]
     Dosage: 40 MG,PER DAY
     Route: 048
  5. GLYBURIDE [Concomitant]
     Indication: DIABETES MELLITUS
     Dosage: 3.5 MG, PER DAY
     Route: 048
  6. TRIAMTERENE AND HYDROCHLOROTHIAZIDE [Concomitant]
     Dosage: 0.5 DF, QD
     Route: 048
  7. TRIMIPRAMINE MALEATE [Suspect]
     Dosage: 250 MG, PER DAY
     Route: 048
     Dates: start: 20001023, end: 20001127
  8. TRIMIPRAMINE MALEATE [Suspect]
     Dosage: 200 MG, PER DAY
     Route: 048
     Dates: start: 20001128
  9. CITALOPRAM HYDROBROMIDE [Suspect]
     Dosage: 10 MG, PER DAY
     Route: 048
     Dates: start: 20001216, end: 20001218
  10. TEGRETOL [Suspect]
     Dosage: 200 MG, PER DAY
     Route: 048
     Dates: start: 20001130, end: 20001203
  11. LACTULOSE [Concomitant]
     Dosage: 30 ML, PER DAY
     Route: 048
  12. TEGRETOL [Suspect]
     Dosage: 400 MG, PER DAY
     Route: 048
     Dates: start: 20001204, end: 20001205

REACTIONS (1)
  - ELECTROCARDIOGRAM QT PROLONGED [None]
